FAERS Safety Report 10286729 (Version 1)
Quarter: 2014Q3

REPORT INFORMATION
  Report Type: Spontaneous
  Country: US (occurrence: US)
  Receive Date: 20140709
  Receipt Date: 20140709
  Transmission Date: 20150326
  Serious: No
  Sender: FDA-Public Use
  Company Number: US-BAYER-2014-102762

PATIENT
  Age: 83 Year
  Sex: Female
  Weight: 67.57 kg

DRUGS (2)
  1. ALEVE [Suspect]
     Active Substance: NAPROXEN SODIUM
     Indication: ARTHRITIS
     Dosage: 2 DF, BID
     Route: 048
     Dates: start: 2012, end: 2014
  2. ALEVE [Suspect]
     Active Substance: NAPROXEN SODIUM
     Indication: ARTHRALGIA
     Dosage: 2 DF, QD
     Dates: start: 2014

REACTIONS (3)
  - Incorrect drug administration duration [None]
  - Abdominal pain upper [Not Recovered/Not Resolved]
  - Extra dose administered [None]

NARRATIVE: CASE EVENT DATE: 2012
